FAERS Safety Report 19948169 (Version 2)
Quarter: 2021Q4

REPORT INFORMATION
  Report Type: Report from Study
  Country: IT (occurrence: IT)
  Receive Date: 20211012
  Receipt Date: 20211026
  Transmission Date: 20220304
  Serious: Yes (Hospitalization)
  Sender: FDA-Public Use
  Company Number: IT-002147023-NVSC2021IT166999

PATIENT

DRUGS (1)
  1. RUXOLITINIB [Suspect]
     Active Substance: RUXOLITINIB
     Indication: Myeloproliferative neoplasm
     Dosage: 40 MG, QD
     Route: 048
     Dates: start: 20210202, end: 20210928

REACTIONS (24)
  - Blood albumin increased [Unknown]
  - Blood alkaline phosphatase increased [Unknown]
  - Beta 2 microglobulin decreased [Unknown]
  - C-reactive protein increased [Unknown]
  - Blood creatinine increased [Unknown]
  - Bilirubin conjugated increased [Unknown]
  - Gamma-glutamyltransferase increased [Unknown]
  - Blood glucose increased [Unknown]
  - Haematocrit decreased [Unknown]
  - Haemoglobin decreased [Unknown]
  - Herpes zoster reactivation [Unknown]
  - Product use in unapproved indication [Unknown]
  - Blood lactate dehydrogenase increased [Unknown]
  - Lymphocyte count decreased [Unknown]
  - Mean cell haemoglobin decreased [Unknown]
  - Monocyte count increased [Unknown]
  - Platelet count increased [Unknown]
  - Acute leukaemia [Recovered/Resolved]
  - Blood urea increased [Unknown]
  - Blood sodium decreased [Unknown]
  - Fatigue [Unknown]
  - Blood bilirubin increased [Unknown]
  - Blood uric acid increased [Unknown]
  - White blood cell count increased [Unknown]

NARRATIVE: CASE EVENT DATE: 20210202
